FAERS Safety Report 4499054-6 (Version None)
Quarter: 2004Q4

REPORT INFORMATION
  Report Type: 
  Country: None (occurrence: None)
  Receive Date: 20041110
  Receipt Date: 20041110
  Transmission Date: 20050328
  Serious: Yes (Disabling)
  Sender: FDA-Public Use
  Company Number: None

PATIENT
  Age: 56 Year
  Sex: Male
  Weight: 86.637 kg

DRUGS (1)
  1. LIPITOR [Suspect]
     Indication: BLOOD CHOLESTEROL INCREASED
     Dosage: 1 DAILY ORAL
     Route: 048
     Dates: start: 20040226, end: 20041028

REACTIONS (16)
  - ABASIA [None]
  - ALOPECIA [None]
  - BACK PAIN [None]
  - CEREBROVASCULAR ACCIDENT [None]
  - CONFUSIONAL STATE [None]
  - FEELING ABNORMAL [None]
  - FLATULENCE [None]
  - GALLBLADDER PAIN [None]
  - HYPOAESTHESIA [None]
  - INSOMNIA [None]
  - MUSCLE SPASMS [None]
  - MUSCULOSKELETAL DISCOMFORT [None]
  - NECK PAIN [None]
  - PAIN [None]
  - PARAESTHESIA [None]
  - VISION BLURRED [None]
